FAERS Safety Report 6762213-3 (Version None)
Quarter: 2010Q2

REPORT INFORMATION
  Report Type: 
  Country: None (occurrence: None)
  Receive Date: 20100504
  Receipt Date: 20100423
  Transmission Date: 20101027
  Serious: Yes (Life-Threatening, Hospitalization, Other)
  Sender: FDA-Public Use
  Company Number: WSDF_00624

PATIENT
  Sex: Female
  Weight: 73 kg

DRUGS (5)
  1. WINRHO SDF LIQUID [Suspect]
     Indication: IDIOPATHIC THROMBOCYTOPENIC PURPURA
     Dosage: 72.6 UG/KG TOTAL INTRAVENOUS (NOT OTHERWISE SPECIFIED), (INTRAVENOUS (NOT OTHERWISE SPECIFIED)
     Route: 042
     Dates: start: 20070305, end: 20070305
  2. WINRHO SDF LIQUID [Suspect]
     Indication: IDIOPATHIC THROMBOCYTOPENIC PURPURA
     Dosage: 72.6 UG/KG TOTAL INTRAVENOUS (NOT OTHERWISE SPECIFIED), (INTRAVENOUS (NOT OTHERWISE SPECIFIED)
     Route: 042
     Dates: start: 20070305, end: 20070305
  3. WINRHO SDF LIQUID [Suspect]
     Indication: IDIOPATHIC THROMBOCYTOPENIC PURPURA
     Dosage: 72.6 UG/KG TOTAL INTRAVENOUS (NOT OTHERWISE SPECIFIED), (INTRAVENOUS (NOT OTHERWISE SPECIFIED)
     Route: 042
     Dates: start: 20070305, end: 20070305
  4. WINRHO SDF LIQUID [Suspect]
  5. WINRHO SDF LIQUID [Suspect]

REACTIONS (16)
  - ANAPHYLACTOID REACTION [None]
  - APPARENT DEATH [None]
  - CHEST PAIN [None]
  - CYANOSIS [None]
  - DYSPNOEA [None]
  - EXOPHTHALMOS [None]
  - FALL [None]
  - FEELING ABNORMAL [None]
  - INFUSION RELATED REACTION [None]
  - MALAISE [None]
  - NAUSEA [None]
  - OVERDOSE [None]
  - POOR PERIPHERAL CIRCULATION [None]
  - RESPIRATORY ARREST [None]
  - SELECTIVE IGA IMMUNODEFICIENCY [None]
  - YELLOW SKIN [None]
